FAERS Safety Report 22050667 (Version 2)
Quarter: 2023Q1

REPORT INFORMATION
  Report Type: Spontaneous
  Country: US (occurrence: US)
  Receive Date: 20230301
  Receipt Date: 20230306
  Transmission Date: 20230417
  Serious: No
  Sender: FDA-Public Use
  Company Number: US-Calliditas-2023CAL00182

PATIENT
  Age: 35 Year
  Sex: Female

DRUGS (3)
  1. TARPEYO [Suspect]
     Active Substance: BUDESONIDE
     Indication: IgA nephropathy
     Dosage: 16 MG (4 MG CAPSULES) ONCE DAILY
     Route: 048
     Dates: start: 20230211
  2. STELARA [Concomitant]
     Active Substance: USTEKINUMAB
  3. LOSARTAN [Concomitant]
     Active Substance: LOSARTAN

REACTIONS (3)
  - Product use complaint [Not Recovered/Not Resolved]
  - Localised infection [Recovering/Resolving]
  - Urine protein/creatinine ratio increased [Not Recovered/Not Resolved]

NARRATIVE: CASE EVENT DATE: 20230211
